FAERS Safety Report 9044631 (Version 5)
Quarter: 2013Q4

REPORT INFORMATION
  Report Type: Report from Study
  Country: FR (occurrence: FR)
  Receive Date: 20130130
  Receipt Date: 20131004
  Transmission Date: 20140711
  Serious: Yes (Other)
  Sender: FDA-Public Use
  Company Number: FR-AMGEN-FRACT2013006255

PATIENT
  Age: 72 Year
  Sex: Female
  Weight: 50 kg

DRUGS (6)
  1. PANITUMUMAB [Suspect]
     Indication: GASTROOESOPHAGEAL CANCER
     Dosage: 312 MG, UNK
     Route: 042
     Dates: start: 20120921
  2. OXALIPLATIN [Concomitant]
     Indication: GASTROOESOPHAGEAL CANCER
     Dosage: 125 MG, UNK
     Route: 042
     Dates: start: 20120921
  3. LEUCOVORIN [Concomitant]
     Indication: GASTROOESOPHAGEAL CANCER
     Dosage: 292 MG, UNK
     Route: 042
     Dates: start: 20120921
  4. 5-FU [Concomitant]
     Indication: GASTROOESOPHAGEAL CANCER
     Dosage: UNK
     Route: 042
     Dates: start: 20120921
  5. DOXYCYCLINE [Concomitant]
     Dosage: UNK
  6. RULID [Concomitant]
     Indication: BRONCHITIS
     Dosage: UNK
     Route: 048
     Dates: start: 20121116, end: 20121123

REACTIONS (2)
  - Neutropenia [Recovered/Resolved]
  - Anaemia [Recovered/Resolved with Sequelae]
